FAERS Safety Report 6482501-8 (Version None)
Quarter: 2009Q4

REPORT INFORMATION
  Report Type: 
  Country: None (occurrence: None)
  Receive Date: 20091208
  Receipt Date: 20090911
  Transmission Date: 20100525
  Serious: No
  Sender: FDA-Public Use
  Company Number: US-AMGEN-TCS364098

PATIENT
  Sex: Female

DRUGS (4)
  1. ENBREL [Suspect]
     Indication: RHEUMATOID ARTHRITIS
     Route: 058
     Dates: start: 20070131, end: 20090623
  2. ENBREL [Suspect]
     Indication: PSORIASIS
  3. ENBREL [Suspect]
     Indication: PUSTULAR PSORIASIS
  4. LEFLUNOMIDE [Concomitant]
     Route: 048

REACTIONS (10)
  - FOOD ALLERGY [None]
  - JOINT SURGERY [None]
  - MUSCLE SPASMS [None]
  - NAIL DISORDER [None]
  - ONYCHALGIA [None]
  - PRURITUS [None]
  - PUSTULAR PSORIASIS [None]
  - RHEUMATOID ARTHRITIS [None]
  - SCIATICA [None]
  - SWELLING FACE [None]
